FAERS Safety Report 19467881 (Version 14)
Quarter: 2021Q4

REPORT INFORMATION
  Report Type: Report from Study
  Country: TR (occurrence: None)
  Receive Date: 20210628
  Receipt Date: 20211125
  Transmission Date: 20220303
  Serious: Yes (Hospitalization)
  Sender: FDA-Public Use
  Company Number: TR-ROCHE-2854538

PATIENT
  Age: 59 Year
  Sex: Male
  Weight: 85 kg

DRUGS (30)
  1. ATEZOLIZUMAB [Suspect]
     Active Substance: ATEZOLIZUMAB
     Indication: Non-small cell lung cancer metastatic
     Dosage: THE START DATE OF MOST RECENT DOSE OF ATEZOLIZUMAB (1875 MG) PRIOR TO AE AND SAE (SERIOUS ADVERSE EV
     Route: 058
     Dates: start: 20210617
  2. HYDROCORTISONE ACETATE [Concomitant]
     Active Substance: HYDROCORTISONE ACETATE
     Indication: Rash
     Route: 061
     Dates: start: 20210820
  3. METICURE [Concomitant]
     Route: 042
     Dates: start: 20211001
  4. TODAVIT [Concomitant]
     Dosage: 1 OTHER
     Route: 042
     Dates: start: 20211001
  5. TAZERACIN [Concomitant]
     Route: 042
     Dates: start: 20211002
  6. HEPASELAMIN [Concomitant]
     Route: 042
     Dates: start: 20211002
  7. ORALAC [Concomitant]
     Route: 048
     Dates: start: 20211002
  8. ALBUMIN HUMAN [Concomitant]
     Active Substance: ALBUMIN HUMAN
     Route: 042
     Dates: start: 20211002
  9. COLIDUR [Concomitant]
     Route: 048
     Dates: start: 20211002
  10. HEPALORNITIN [Concomitant]
     Route: 042
     Dates: start: 20211002
  11. URSODIN [Concomitant]
     Route: 048
     Dates: start: 20211002
  12. OKSAPAR [Concomitant]
     Route: 042
     Dates: start: 20211002
  13. PREDNOL-L [Concomitant]
     Route: 042
     Dates: start: 20211001
  14. TRANKO-BUSKAS [Concomitant]
     Indication: Anxiety
     Route: 062
     Dates: start: 20210826
  15. ZESTAT (TURKEY) [Concomitant]
     Indication: Anxiety
     Route: 048
     Dates: start: 20210826
  16. SELECTRA (TURKEY) [Concomitant]
     Indication: Anxiety
     Dosage: ONGOING
     Route: 048
     Dates: start: 20210826
  17. MEGACE [Concomitant]
     Active Substance: MEGESTROL ACETATE
     Indication: Weight decreased
     Route: 048
     Dates: start: 20210910
  18. CERNEVIT [Concomitant]
     Active Substance: VITAMINS
     Route: 042
     Dates: start: 20211001
  19. PAROL [Concomitant]
     Active Substance: ACETAMINOPHEN
  20. PREDNOL-L [Concomitant]
  21. ANDOREX [Concomitant]
     Route: 048
     Dates: start: 20211001
  22. NYSTATIN [Concomitant]
     Active Substance: NYSTATIN
     Route: 048
     Dates: start: 20211001
  23. TAZOJECT [Concomitant]
     Route: 048
     Dates: start: 20211001
  24. ATIVAN EXPIDET [Concomitant]
     Dates: start: 20211004
  25. ROCURONIUM BROMIDE [Concomitant]
     Active Substance: ROCURONIUM BROMIDE
     Route: 042
     Dates: start: 20211005
  26. BRIDION [Concomitant]
     Active Substance: SUGAMMADEX
     Route: 042
     Dates: start: 20211005
  27. BACTRIM [Concomitant]
     Active Substance: SULFAMETHOXAZOLE\TRIMETHOPRIM
     Route: 048
     Dates: start: 20211005
  28. SUPPORTAN [Concomitant]
     Indication: Weight decreased
     Route: 048
     Dates: start: 20210910
  29. SUPPORTAN [Concomitant]
     Route: 048
     Dates: start: 20211004
  30. DUPHALAC [Concomitant]
     Active Substance: LACTULOSE
     Route: 048
     Dates: start: 20211002

REACTIONS (1)
  - Back pain [Recovering/Resolving]

NARRATIVE: CASE EVENT DATE: 20210618
